FAERS Safety Report 25473978 (Version 1)
Quarter: 2025Q2

REPORT INFORMATION
  Report Type: Spontaneous
  Country: US (occurrence: None)
  Receive Date: 20250623
  Receipt Date: 20250623
  Transmission Date: 20250717
  Serious: Yes (Hospitalization)
  Sender: FDA-CTU
  Company Number: None

PATIENT
  Sex: Female

DRUGS (2)
  1. NIVESTYM [Suspect]
     Active Substance: FILGRASTIM-AAFI
     Indication: Plasma cell myeloma
     Dosage: 300 UG MICROGRAM(S) 3 TIMES A WEEK SUBCUTANEOUS?
     Route: 058
  2. NIVESTYM [Suspect]
     Active Substance: FILGRASTIM-AAFI
     Indication: Agranulocytosis

REACTIONS (2)
  - Hospitalisation [None]
  - Plasma cell myeloma [None]
